FAERS Safety Report 9164673 (Version 1)
Quarter: 2013Q1

REPORT INFORMATION
  Report Type: Spontaneous
  Country: GB (occurrence: None)
  Receive Date: 20130226
  Receipt Date: 20130226
  Transmission Date: 20140127
  Serious: Yes (Life-Threatening, Hospitalization, Other)
  Sender: FDA-Public Use
  Company Number: AUR-APL-2013-01467

PATIENT
  Age: 72 Year
  Sex: Male
  Weight: 78 kg

DRUGS (4)
  1. ALENDRONIC ACID (ALENDRONIC ACID) [Suspect]
     Indication: PRODUCT USED FOR UNKNOWN INDICATION
     Route: 048
     Dates: start: 20121228, end: 20130105
  2. ADCAL-D3 (LEKOVITCA) [Concomitant]
  3. OMEPRAZOLE (OMEPRAZOLE) [Concomitant]
  4. PREDNISOLONE (PREDNISOLONE) [Suspect]

REACTIONS (2)
  - Oesophageal varices haemorrhage [None]
  - Apparent life threatening event [None]
